FAERS Safety Report 7162513-1 (Version None)
Quarter: 2010Q4

REPORT INFORMATION
  Report Type: 
  Country: None (occurrence: None)
  Receive Date: 20101215
  Receipt Date: 20101210
  Transmission Date: 20110411
  Serious: Yes (Other)
  Sender: FDA-Public Use
  Company Number: BR-ROCHE-747771

PATIENT
  Sex: Female
  Weight: 69 kg

DRUGS (5)
  1. RIVOTRIL [Suspect]
     Indication: SEDATION
     Dosage: 2 TABLETS
     Route: 065
     Dates: start: 20100101, end: 20100101
  2. DIAZEPAM [Suspect]
     Indication: DEPRESSION
     Route: 065
     Dates: start: 19830101
  3. DEPO-PROVERA [Suspect]
     Route: 065
     Dates: start: 20101112
  4. HALDOL [Concomitant]
     Indication: DEPRESSION
     Dates: start: 19830101
  5. AKINETON [Concomitant]
     Indication: DEPRESSION
     Dates: start: 19830101

REACTIONS (13)
  - DEHYDRATION [None]
  - DIZZINESS [None]
  - DROOLING [None]
  - DRUG INEFFECTIVE [None]
  - FINGER DEFORMITY [None]
  - HAEMORRHAGE [None]
  - MENSTRUATION DELAYED [None]
  - NERVOUSNESS [None]
  - OVARIAN CYST [None]
  - SOMNOLENCE [None]
  - SYNCOPE [None]
  - TREMOR [None]
  - WEIGHT DECREASED [None]
